FAERS Safety Report 19434806 (Version 1)
Quarter: 2021Q2

REPORT INFORMATION
  Report Type: Spontaneous
  Country: US (occurrence: US)
  Receive Date: 20210617
  Receipt Date: 20210617
  Transmission Date: 20210717
  Serious: No
  Sender: FDA-Public Use
  Company Number: US-ROCHE-2639527

PATIENT
  Sex: Male
  Weight: 102 kg

DRUGS (3)
  1. ACTEMRA [Suspect]
     Active Substance: TOCILIZUMAB
     Indication: COVID-19
     Dosage: DOS:7/8/2020,162 MG SC TWICE A DAY FOR UP TO 3 DOSES;
     Route: 058
     Dates: start: 20200708
  2. ZINC. [Concomitant]
     Active Substance: ZINC
     Indication: COVID-19
     Route: 046
     Dates: start: 20200708
  3. DECADRON [Concomitant]
     Active Substance: DEXAMETHASONE
     Indication: COVID-19
     Route: 048
     Dates: start: 20200708

REACTIONS (3)
  - Off label use [Unknown]
  - Intentional product use issue [Unknown]
  - No adverse event [Unknown]
